FAERS Safety Report 4669324-7 (Version None)
Quarter: 2005Q2

REPORT INFORMATION
  Report Type: 
  Country: None (occurrence: None)
  Receive Date: 20050519
  Receipt Date: 20050506
  Transmission Date: 20051028
  Serious: Yes (Other)
  Sender: FDA-Public Use
  Company Number: HQWYE971615DEC04

PATIENT
  Age: 39 Year
  Sex: Male

DRUGS (18)
  1. NEORAL [Suspect]
     Indication: PROPHYLAXIS AGAINST TRANSPLANT REJECTION
     Dosage: 15 MG 1X PER 1 DAY
     Route: 048
     Dates: start: 20030624, end: 20041209
  2. RANITIDINE [Concomitant]
  3. EPOGEN [Concomitant]
  4. FOLIC ACID [Concomitant]
  5. CALCIUM WITH VITAMIN D (CALCIUM PHOSPHATE/CALCIUM SODIUM LACTATE/ERGOC [Concomitant]
  6. ALENDRONATE SODIUM [Concomitant]
  7. FE (TEGAFUR) [Concomitant]
  8. ALLOPURINOL [Concomitant]
  9. ACETYLSALICYLIC ACID (ACETYLSALIC ACID) [Concomitant]
  10. OMEGA 3 (FISH OIL) [Concomitant]
  11. DOXAZOSIN (DOXAZOSIN) [Concomitant]
  12. ATENOLOL [Concomitant]
  13. FUROSEMIDE [Concomitant]
  14. MANIDIPINE (MANIDIPINE) [Concomitant]
  15. ATORVASTATIN CALCIUM [Concomitant]
  16. MYCOPHENOLATE MOFETIL (MYCOPHENOLATE MOFETIL) [Concomitant]
  17. PREDNISONE [Concomitant]
  18. IRON (IRON) [Concomitant]

REACTIONS (5)
  - CONCOMITANT DISEASE PROGRESSION [None]
  - FLUID OVERLOAD [None]
  - GRAFT LOSS [None]
  - HAEMODIALYSIS [None]
  - RENAL FAILURE [None]
